FAERS Safety Report 8228045-4 (Version None)
Quarter: 2012Q1

REPORT INFORMATION
  Report Type: 
  Country: None (occurrence: None)
  Receive Date: 20120322
  Receipt Date: 20120127
  Transmission Date: 20120608
  Serious: Yes (Other)
  Sender: FDA-Public Use
  Company Number: US-BRISTOL-MYERS SQUIBB COMPANY-16345498

PATIENT
  Age: 53 Year
  Sex: Male
  Weight: 102 kg

DRUGS (1)
  1. ERBITUX [Suspect]
     Indication: TONSIL CANCER
     Dosage: 1ST TREATMENT ONLY
     Route: 042
     Dates: start: 20120105, end: 20120105

REACTIONS (4)
  - URTICARIA [None]
  - SWELLING [None]
  - MUSCLE SPASMS [None]
  - ACNE [None]
